FAERS Safety Report 7217751-6 (Version None)
Quarter: 2011Q1

REPORT INFORMATION
  Report Type: 
  Country: None (occurrence: None)
  Receive Date: 20110110
  Receipt Date: 20101228
  Transmission Date: 20110831
  Serious: Yes (Hospitalization)
  Sender: FDA-Public Use
  Company Number: KR-ELI_LILLY_AND_COMPANY-KR201101000188

PATIENT
  Age: 42 Year
  Sex: Female
  Weight: 40 kg

DRUGS (4)
  1. HUMALOG MIX 50/50 [Suspect]
     Dosage: 46 U, 2/D
     Route: 058
     Dates: start: 20100101, end: 20101227
  2. HUMALOG MIX 50/50 [Suspect]
     Dosage: 20 U, 3/D
     Route: 058
     Dates: start: 20100601, end: 20101101
  3. HUMALOG MIX 50/50 [Suspect]
     Dosage: 44 U, 3/D
     Dates: start: 20101101
  4. HUMALOG MIX 50/50 [Suspect]
     Dosage: 48 U, DAILY (1/D)
     Route: 058
     Dates: start: 20100101, end: 20101227

REACTIONS (3)
  - OEDEMA PERIPHERAL [None]
  - HYPERGLYCAEMIA [None]
  - PAIN [None]
